FAERS Safety Report 14044794 (Version 1)
Quarter: 2017Q4

REPORT INFORMATION
  Report Type: Spontaneous
  Country: US (occurrence: US)
  Receive Date: 20171005
  Receipt Date: 20171005
  Transmission Date: 20180321
  Serious: Yes (Other)
  Sender: FDA-Public Use
  Company Number: US-FRESENIUS KABI-FK201708143

PATIENT
  Age: 35 Year
  Sex: Female

DRUGS (2)
  1. TRANEXAMIC ACID (MANUFACTURER UNKNOWN) [Suspect]
     Active Substance: TRANEXAMIC ACID
     Indication: HAEMORRHAGE PROPHYLAXIS
     Route: 042
  2. TRANEXAMIC ACID (MANUFACTURER UNKNOWN) [Suspect]
     Active Substance: TRANEXAMIC ACID
     Route: 041

REACTIONS (4)
  - Renal vein thrombosis [Recovered/Resolved]
  - Product use in unapproved indication [Recovered/Resolved]
  - Maternal exposure during delivery [Recovered/Resolved]
  - Peripheral artery thrombosis [Recovered/Resolved]
